FAERS Safety Report 17662687 (Version 3)
Quarter: 2021Q1

REPORT INFORMATION
  Report Type: Spontaneous
  Country: FR (occurrence: FR)
  Receive Date: 20200413
  Receipt Date: 20210126
  Transmission Date: 20210419
  Serious: Yes (Other)
  Sender: FDA-Public Use
  Company Number: FR-PFIZER INC-2020148903

PATIENT
  Age: 63 Year
  Sex: Male
  Weight: 85 kg

DRUGS (12)
  1. CEFOTAXIME SODIUM [Suspect]
     Active Substance: CEFOTAXIME SODIUM
     Dosage: 3 GRAM, QD
     Route: 042
     Dates: start: 20200308, end: 20200317
  2. PANTOPRAZOLE [Suspect]
     Active Substance: PANTOPRAZOLE
     Dosage: 40 MILLIGRAM, QD
     Route: 042
     Dates: start: 20200308, end: 20200319
  3. PROPOFOL. [Suspect]
     Active Substance: PROPOFOL
     Dosage: UNK
     Route: 042
     Dates: start: 20200312, end: 20200317
  4. CISATRACURIUM BESILATE [Suspect]
     Active Substance: CISATRACURIUM BESYLATE
     Dosage: UNK
     Route: 042
     Dates: start: 20200312, end: 20200320
  5. LASILIX [FUROSEMIDE] [Concomitant]
     Active Substance: FUROSEMIDE
     Dosage: UNK
  6. ROVAMYCINE [SPIRAMYCIN ADEPATE] [Concomitant]
     Active Substance: SPIRAMYCIN ADIPATE
     Dosage: UNK
  7. MIDAZOLAM. [Suspect]
     Active Substance: MIDAZOLAM
     Dosage: UNK
     Route: 042
     Dates: start: 20200314, end: 20200320
  8. HEPARINE SODIQUE [Suspect]
     Active Substance: HEPARIN SODIUM
     Dosage: UNK
     Route: 058
     Dates: start: 20200312, end: 20200320
  9. KALETRA [Suspect]
     Active Substance: LOPINAVIR\RITONAVIR
     Indication: CORONAVIRUS INFECTION
     Dosage: 800 MG, 1X/DAY
     Route: 048
     Dates: start: 20200311, end: 20200317
  10. SUFENTANIL [Suspect]
     Active Substance: SUFENTANIL
     Dosage: UNK
     Route: 042
     Dates: start: 20200312, end: 20200317
  11. BRICANYL [Suspect]
     Active Substance: TERBUTALINE SULFATE
     Dosage: UNK UNK, QD
     Route: 055
     Dates: start: 20200309, end: 20200320
  12. ATROVENT [Suspect]
     Active Substance: IPRATROPIUM BROMIDE
     Dosage: 4 DF, 1X/DAY
     Route: 055
     Dates: start: 20200309, end: 20200320

REACTIONS (3)
  - Hyperbilirubinaemia [Recovered/Resolved]
  - Hypertriglyceridaemia [Not Recovered/Not Resolved]
  - Aspartate aminotransferase increased [Recovered/Resolved]

NARRATIVE: CASE EVENT DATE: 202003
